FAERS Safety Report 10520539 (Version 13)
Quarter: 2015Q3

REPORT INFORMATION
  Report Type: Report from Study
  Country: US (occurrence: US)
  Receive Date: 20141015
  Receipt Date: 20150731
  Transmission Date: 20151125
  Serious: Yes (Hospitalization)
  Sender: FDA-Public Use
  Company Number: US-009507513-1408USA000593

PATIENT
  Age: 43 Year
  Sex: Female
  Weight: 63.2 kg

DRUGS (14)
  1. PEMBROLIZUMAB. [Suspect]
     Active Substance: PEMBROLIZUMAB
     Indication: BREAST CANCER
     Dosage: 10 MG/KG, QOW
     Route: 042
     Dates: start: 20131031, end: 20140129
  2. ERIBULIN MESYLATE [Suspect]
     Active Substance: ERIBULIN MESYLATE
     Indication: NEOPLASM MALIGNANT
     Dosage: 1.5 MG, QW
     Route: 058
     Dates: start: 20140402, end: 20140715
  3. SARNA [Concomitant]
     Active Substance: CAMPHOR (NATURAL)\MENTHOL\PRAMOXINE HYDROCHLORIDE
     Indication: PRURITUS
     Dosage: UNK, PRN
     Route: 061
     Dates: start: 20140312
  4. VICODIN [Concomitant]
     Active Substance: ACETAMINOPHEN\HYDROCODONE BITARTRATE
     Indication: ARTHRALGIA
  5. BENADRYL [Concomitant]
     Active Substance: DIPHENHYDRAMINE HYDROCHLORIDE
     Indication: PRODUCTIVE COUGH
  6. SARNA [Concomitant]
     Active Substance: CAMPHOR (NATURAL)\MENTHOL\PRAMOXINE HYDROCHLORIDE
     Indication: DRY SKIN
  7. PEMBROLIZUMAB. [Suspect]
     Active Substance: PEMBROLIZUMAB
     Dosage: 10 MG/KG, QOW
     Route: 042
     Dates: start: 20140219, end: 20140219
  8. LEVOTHYROXINE SODIUM. [Concomitant]
     Active Substance: LEVOTHYROXINE SODIUM
     Indication: HYPOTHYROIDISM
     Dosage: 75 MICROGRAM, QD
     Route: 048
     Dates: start: 20140405
  9. DOCUSATE SODIUM. [Concomitant]
     Active Substance: DOCUSATE SODIUM
     Indication: CONSTIPATION
     Dosage: TOTAL DAILY DOSE 50 MG, FORMULATION: PILL
     Route: 048
     Dates: start: 20131218
  10. VICODIN [Concomitant]
     Active Substance: ACETAMINOPHEN\HYDROCODONE BITARTRATE
     Indication: HEADACHE
     Dosage: TOTAL DAILY DOSE 5 MG, FREQUENCY: OTHER
     Route: 050
     Dates: start: 20131218
  11. DALTEPARIN SODIUM [Concomitant]
     Active Substance: DALTEPARIN SODIUM
     Indication: THROMBOSIS PROPHYLAXIS
     Dosage: DOSE: 12500 IU, QD
     Route: 058
     Dates: start: 20130824
  12. BENADRYL [Concomitant]
     Active Substance: DIPHENHYDRAMINE HYDROCHLORIDE
     Indication: RASH PRURITIC
     Dosage: 25 MG, QD
     Route: 048
     Dates: start: 20131115
  13. TURMERIC [Concomitant]
     Active Substance: TURMERIC
     Indication: VITAMIN SUPPLEMENTATION
     Dosage: UNK, TID
     Route: 048
     Dates: start: 201310
  14. CHERATUSSIN AC [Concomitant]
     Active Substance: CODEINE PHOSPHATE\GUAIFENESIN
     Indication: PRODUCTIVE COUGH
     Dosage: TOTAL DAILY DOSE: 5 UNITS NOT PROVIDED, FREQUENCY OTHER
     Route: 048
     Dates: start: 20140311

REACTIONS (3)
  - Joint effusion [Recovered/Resolved]
  - Diarrhoea [Recovered/Resolved]
  - Enterocolitis [Recovered/Resolved]

NARRATIVE: CASE EVENT DATE: 20140704
